FAERS Safety Report 21522897 (Version 6)
Quarter: 2022Q4

REPORT INFORMATION
  Report Type: Spontaneous
  Country: US (occurrence: US)
  Receive Date: 20221029
  Receipt Date: 20221209
  Transmission Date: 20230113
  Serious: Yes (Other)
  Sender: FDA-Public Use
  Company Number: US-UNITED THERAPEUTICS-UNT-2022-024632

PATIENT
  Sex: Female
  Weight: 52.154 kg

DRUGS (18)
  1. ORENITRAM [Suspect]
     Active Substance: TREPROSTINIL
     Indication: Pulmonary arterial hypertension
     Dosage: UNK
     Route: 048
     Dates: start: 20221004
  2. ORENITRAM [Suspect]
     Active Substance: TREPROSTINIL
     Dosage: 6.375 MG, TID
     Route: 048
     Dates: start: 20221013
  3. ORENITRAM [Suspect]
     Active Substance: TREPROSTINIL
     Dosage: 6.125 MG, TID
     Route: 048
     Dates: start: 202210, end: 20221024
  4. ORENITRAM [Suspect]
     Active Substance: TREPROSTINIL
     Dosage: 1.25 MG, TID
     Route: 048
     Dates: start: 202210, end: 202210
  5. ORENITRAM [Suspect]
     Active Substance: TREPROSTINIL
     Dosage: 6 MG, TID
     Route: 048
     Dates: start: 20221024, end: 202210
  6. ORENITRAM [Suspect]
     Active Substance: TREPROSTINIL
     Dosage: 5.75 MG, TID
     Route: 048
     Dates: start: 202210, end: 2022
  7. ORENITRAM [Suspect]
     Active Substance: TREPROSTINIL
     Dosage: 5.5 MG, TID
     Route: 048
     Dates: start: 20221103, end: 202211
  8. ORENITRAM [Suspect]
     Active Substance: TREPROSTINIL
     Dosage: 5.75 MG, TID
     Route: 048
     Dates: start: 202211
  9. ORENITRAM [Suspect]
     Active Substance: TREPROSTINIL
     Indication: Pulmonary arterial hypertension
     Dosage: UNK
     Route: 048
  10. ORENITRAM [Suspect]
     Active Substance: TREPROSTINIL
     Dosage: UNK
     Route: 048
  11. ORENITRAM [Suspect]
     Active Substance: TREPROSTINIL
     Indication: Pulmonary arterial hypertension
     Dosage: UNK
     Route: 048
  12. ORENITRAM [Suspect]
     Active Substance: TREPROSTINIL
     Indication: Pulmonary arterial hypertension
     Dosage: UNK
     Route: 048
  13. ORENITRAM [Suspect]
     Active Substance: TREPROSTINIL
     Indication: Pulmonary arterial hypertension
     Dosage: UNK
     Route: 048
  14. ORENITRAM [Suspect]
     Active Substance: TREPROSTINIL
     Indication: Pulmonary arterial hypertension
     Dosage: UNK
     Route: 048
  15. TREPROSTINIL [Suspect]
     Active Substance: TREPROSTINIL
     Indication: Pulmonary arterial hypertension
     Dosage: 0.036 ?G/KG, CONTINUING
     Route: 041
     Dates: end: 20221013
  16. ADEMPAS [Suspect]
     Active Substance: RIOCIGUAT
     Indication: Product used for unknown indication
     Dosage: UNK
     Route: 065
  17. OPSUMIT [Suspect]
     Active Substance: MACITENTAN
     Indication: Product used for unknown indication
     Dosage: 10 MG, QD
     Route: 048
     Dates: start: 202202
  18. ZOFRAN [Suspect]
     Active Substance: ONDANSETRON HYDROCHLORIDE
     Indication: Nausea
     Dosage: 5.75 MG, TID
     Route: 065
     Dates: start: 202210

REACTIONS (24)
  - Melaena [Unknown]
  - Nausea [Unknown]
  - Vomiting [Recovering/Resolving]
  - Headache [Recovering/Resolving]
  - Neck pain [Unknown]
  - Diarrhoea [Recovering/Resolving]
  - Blood pressure increased [Unknown]
  - Abdominal distension [Recovered/Resolved]
  - Dyspepsia [Unknown]
  - Urine output increased [Unknown]
  - Weight fluctuation [Unknown]
  - Pain [Unknown]
  - Nasopharyngitis [Unknown]
  - Productive cough [Unknown]
  - Fatigue [Unknown]
  - Sinus disorder [Unknown]
  - Anxiety [Not Recovered/Not Resolved]
  - Dyspnoea [Unknown]
  - Gastrointestinal motility disorder [Unknown]
  - Arthralgia [Unknown]
  - Therapy non-responder [Unknown]
  - Abdominal discomfort [Recovering/Resolving]
  - Nasal congestion [Unknown]
  - Nasal septum deviation [Unknown]

NARRATIVE: CASE EVENT DATE: 20220101
